FAERS Safety Report 14419738 (Version 1)
Quarter: 2018Q1

REPORT INFORMATION
  Report Type: Report from Study
  Country: BR (occurrence: BR)
  Receive Date: 20180122
  Receipt Date: 20180122
  Transmission Date: 20180509
  Serious: Yes (Hospitalization, Other)
  Sender: FDA-Public Use
  Company Number: PHHY2018BR001382

PATIENT
  Sex: Female
  Weight: 70 kg

DRUGS (13)
  1. EXELON [Suspect]
     Active Substance: RIVASTIGMINE TARTRATE
     Indication: MEMORY IMPAIRMENT
     Dosage: 1.5 DF, QD
     Route: 048
  2. EXELON [Suspect]
     Active Substance: RIVASTIGMINE TARTRATE
     Indication: SENILE DEMENTIA
     Dosage: 3 MG, QD
     Route: 048
  3. EXELON PATCH [Suspect]
     Active Substance: RIVASTIGMINE
     Indication: SENILE DEMENTIA
     Dosage: 9.5 MG, QD PATCH 10 (CM2)
     Route: 062
  4. HALDOL [Concomitant]
     Active Substance: HALOPERIDOL
     Indication: SENILE DEMENTIA
     Dosage: 5 MG, BID
     Route: 048
  5. HALDOL [Concomitant]
     Active Substance: HALOPERIDOL
     Dosage: 5 MG, QD (STARTED AT LEAST 10 YEARS AGO)
     Route: 048
  6. AMLODIPINE [Concomitant]
     Active Substance: AMLODIPINE BESYLATE
     Indication: CARDIAC DISORDER
     Dosage: 1 DF, QD STARTED 4 YEARS AGO
     Route: 048
  7. MAREVAN [Suspect]
     Active Substance: WARFARIN SODIUM
     Indication: CEREBROVASCULAR ACCIDENT
     Dosage: 1 DF, QD (STARTED 7 YEARS AND WAS SUSPENDED 24 DAYS AFTER THE BEGINNING OF THE TREATMENT)
     Route: 048
  8. EXELON PATCH [Suspect]
     Active Substance: RIVASTIGMINE
     Dosage: 13.3 MG, QD PATCH 15 (CM2)
     Route: 062
  9. CLOPIDOGREL [Concomitant]
     Active Substance: CLOPIDOGREL BISULFATE
     Indication: CEREBROVASCULAR ACCIDENT
     Dosage: 1 DF, QD (IN USE FOR A LONG TIME)
     Route: 048
  10. EXELON PATCH [Suspect]
     Active Substance: RIVASTIGMINE
     Indication: MEMORY IMPAIRMENT
     Dosage: 4.6 MG, QD PATCH 5 (CM2)
     Route: 062
  11. EXELON PATCH [Suspect]
     Active Substance: RIVASTIGMINE
     Dosage: 9.5 MG, QD PATCH 10 (CM2)
     Route: 062
  12. AKINETON [Concomitant]
     Active Substance: BIPERIDEN HYDROCHLORIDE
     Indication: SENILE DEMENTIA
     Dosage: 1 DF, QD (IN USE FOR A LONG TIME.)
     Route: 048
  13. DECOFEN [Concomitant]
     Indication: CEREBRAL DISORDER
     Dosage: 1 DF, QD (IN USE FOR A LONG TIME)
     Route: 048

REACTIONS (10)
  - Vomiting [Not Recovered/Not Resolved]
  - Malaise [Unknown]
  - Nausea [Recovered/Resolved]
  - Dysarthria [Not Recovered/Not Resolved]
  - Haemorrhagic stroke [Not Recovered/Not Resolved]
  - Transient ischaemic attack [Not Recovered/Not Resolved]
  - Hypertension [Not Recovered/Not Resolved]
  - Cerebral atrophy [Not Recovered/Not Resolved]
  - Gastritis [Recovered/Resolved]
  - Musculoskeletal stiffness [Not Recovered/Not Resolved]
